FAERS Safety Report 7638746-4 (Version None)
Quarter: 2011Q3

REPORT INFORMATION
  Report Type: 
  Country: None (occurrence: None)
  Receive Date: 20110727
  Receipt Date: 20110722
  Transmission Date: 20111222
  Serious: Yes (Other)
  Sender: FDA-Public Use
  Company Number: CN-ROCHE-761280

PATIENT
  Age: 49 Year
  Sex: Male

DRUGS (1)
  1. PEGINTERFERON ALFA-2A [Suspect]
     Indication: HEPATITIS C
     Route: 058
     Dates: start: 20101105, end: 20110527

REACTIONS (2)
  - BLOOD URIC ACID INCREASED [None]
  - WHITE BLOOD CELL COUNT DECREASED [None]
